FAERS Safety Report 19684746 (Version 1)
Quarter: 2021Q3

REPORT INFORMATION
  Report Type: Spontaneous
  Country: US (occurrence: US)
  Receive Date: 20210810
  Receipt Date: 20210810
  Transmission Date: 20211014
  Serious: No
  Sender: FDA-Public Use
  Company Number: None

PATIENT

DRUGS (2)
  1. ADRENALIN [Suspect]
     Active Substance: EPINEPHRINE
  2. EPINEPHRINE. [Suspect]
     Active Substance: EPINEPHRINE

REACTIONS (4)
  - Product colour issue [None]
  - Drug ineffective [None]
  - Poor quality product administered [None]
  - Product storage error [None]
